FAERS Safety Report 9587226 (Version 3)
Quarter: 2013Q4

REPORT INFORMATION
  Report Type: Spontaneous
  Country: NO (occurrence: NO)
  Receive Date: 20131003
  Receipt Date: 20131111
  Transmission Date: 20140711
  Serious: Yes (Other)
  Sender: FDA-Public Use
  Company Number: NO-GLAXOSMITHKLINE-B0927125A

PATIENT
  Sex: Male

DRUGS (4)
  1. DUODART [Suspect]
     Indication: PROSTATIC OBSTRUCTION
     Route: 065
  2. MIRABEGRON [Suspect]
     Indication: HYPERTONIC BLADDER
     Dosage: 50MG PER DAY
     Route: 065
     Dates: start: 20130429
  3. TOVIAZ [Suspect]
     Indication: INCONTINENCE
     Dosage: 4MG PER DAY
     Route: 065
     Dates: start: 20130604
  4. VESICARE [Suspect]
     Indication: HYPERTONIC BLADDER
     Dosage: 5TAB PER DAY
     Route: 065
     Dates: start: 20130828, end: 20130912

REACTIONS (9)
  - Atrial fibrillation [Recovered/Resolved]
  - Urinary incontinence [Unknown]
  - Gastrooesophageal reflux disease [Unknown]
  - Dry mouth [Unknown]
  - Palpitations [Unknown]
  - Vomiting [Unknown]
  - Drug ineffective [Unknown]
  - Faeces hard [Unknown]
  - Dry eye [Unknown]
